FAERS Safety Report 9426011 (Version 2)
Quarter: 2014Q1

REPORT INFORMATION
  Report Type: Report from Study
  Country: DE (occurrence: DE)
  Receive Date: 20130730
  Receipt Date: 20140312
  Transmission Date: 20141002
  Serious: Yes (Hospitalization)
  Sender: FDA-Public Use
  Company Number: DE-AMGEN-DEUCT2013052993

PATIENT
  Age: 42 Year
  Sex: Female

DRUGS (11)
  1. ETANERCEPT [Suspect]
     Indication: RHEUMATOID ARTHRITIS
     Dosage: 25 MG, 2 TIMES/WK
     Route: 065
     Dates: end: 20130322
  2. METHOTREXATE SODIUM [Concomitant]
     Indication: RHEUMATOID ARTHRITIS
     Dosage: 20 MG, WEEKLY
  3. PREDNISOLON                        /00016201/ [Concomitant]
     Dosage: UNK
  4. THYRONAJOD [Concomitant]
     Dosage: UNK
  5. FOLIC ACID [Concomitant]
     Dosage: UNK
  6. ARCOXIA [Concomitant]
     Dosage: UNK
  7. CALCILAC                           /00944201/ [Concomitant]
     Dosage: UNK
  8. METOPROLOL [Concomitant]
     Dosage: UNK
  9. ATACAND [Concomitant]
     Dosage: UNK
  10. NOVAMINSULFON [Concomitant]
     Dosage: UNK
  11. TOPAMAX [Concomitant]
     Dosage: UNK

REACTIONS (3)
  - Headache [Recovered/Resolved]
  - Dizziness [Recovered/Resolved]
  - Rheumatoid arthritis [Recovered/Resolved]
